FAERS Safety Report 23102152 (Version 1)
Quarter: 2023Q4

REPORT INFORMATION
  Report Type: Spontaneous
  Country: US (occurrence: None)
  Receive Date: 20231025
  Receipt Date: 20231025
  Transmission Date: 20240109
  Serious: No
  Sender: FDA-Public Use
  Company Number: 2023A240219

PATIENT

DRUGS (1)
  1. FASENRA [Suspect]
     Active Substance: BENRALIZUMAB
     Dosage: EVERY 4 WEEKS FOR THE FIRST 3 DOSES THEN EVERY 8 WEEKS30.0MG/ML UNKNOWN
     Route: 058

REACTIONS (3)
  - Ill-defined disorder [Unknown]
  - Blood glucose decreased [Unknown]
  - Device use issue [Unknown]
